FAERS Safety Report 9579443 (Version 2)
Quarter: 2013Q4

REPORT INFORMATION
  Report Type: Spontaneous
  Country: US (occurrence: US)
  Receive Date: 20131001
  Receipt Date: 20131001
  Transmission Date: 20140711
  Serious: No
  Sender: FDA-Public Use
  Company Number: US-AMGEN-USASP2013014178

PATIENT
  Age: 69 Year
  Sex: Male
  Weight: 89.79 kg

DRUGS (5)
  1. ENBREL [Suspect]
     Indication: PSORIASIS
     Dosage: 50 MG/ML, 2 TIMES/WK
     Route: 058
     Dates: start: 201212, end: 20130122
  2. SIMVASTATIN [Concomitant]
     Dosage: 10 MG, UNK
  3. MELOXICAM [Concomitant]
     Dosage: 15 MG, UNK
  4. FINASTERIDE [Concomitant]
     Dosage: 1 MG, UNK
  5. TRAMADOL HCL [Concomitant]
     Dosage: 50 MG, UNK

REACTIONS (3)
  - Urinary tract infection [Unknown]
  - Haematuria [Recovering/Resolving]
  - Cystitis [Recovering/Resolving]
